FAERS Safety Report 7536796-X (Version None)
Quarter: 2011Q2

REPORT INFORMATION
  Report Type: 
  Country: None (occurrence: None)
  Receive Date: 20110603
  Receipt Date: 20110519
  Transmission Date: 20111010
  Serious: Yes (Other)
  Sender: FDA-Public Use
  Company Number: AUR-APL-2011-01767

PATIENT
  Age: 50 Year
  Sex: Male

DRUGS (4)
  1. ATORVASTATIN [Suspect]
     Dosage: 40MG
  2. FENOFIBRATE [Suspect]
     Dosage: 267MG
  3. SIMVASTATIN [Suspect]
     Dosage: 80MG
  4. ROSIGLITAZONE [Suspect]
     Dosage: 4MG

REACTIONS (1)
  - HIGH DENSITY LIPOPROTEIN DECREASED [None]
